FAERS Safety Report 8928941 (Version 1)
Quarter: 2012Q4

REPORT INFORMATION
  Report Type: Spontaneous
  Country: DK (occurrence: None)
  Receive Date: 20121120
  Receipt Date: 20121120
  Transmission Date: 20130627
  Serious: Yes (Other)
  Sender: FDA-Public Use
  Company Number: 2012MA013466

PATIENT
  Age: 26 Year
  Sex: Female

DRUGS (5)
  1. METFORMIN HYDROCHLORIDE [Suspect]
     Indication: DIABETES STEROID-INDUCED
     Dates: start: 20121018, end: 20121018
  2. PULMICORT [Concomitant]
  3. SALBUTAMOL [Concomitant]
  4. VENTOLIN [Concomitant]
  5. PREDNISOLONE [Concomitant]

REACTIONS (3)
  - Pruritus generalised [None]
  - Hallucination [None]
  - Maternal exposure during pregnancy [None]
